FAERS Safety Report 21189566 (Version 1)
Quarter: 2022Q3

REPORT INFORMATION
  Report Type: Spontaneous
  Country: US (occurrence: None)
  Receive Date: 20220808
  Receipt Date: 20220808
  Transmission Date: 20221026
  Serious: Yes (Hospitalization)
  Sender: FDA-Public Use
  Company Number: None

PATIENT
  Sex: Female

DRUGS (1)
  1. BOTOX [Suspect]
     Active Substance: ONABOTULINUMTOXINA
     Indication: Migraine
     Dosage: 200 UNIT ?INJECT 155 UNITS IN THE MUSCLE PER MIGRAINE PROTOCOL EVERY 90 DAYS.? ?
     Dates: start: 20190510

REACTIONS (1)
  - Hospitalisation [None]
